FAERS Safety Report 11575751 (Version 1)
Quarter: 2015Q3

REPORT INFORMATION
  Report Type: Spontaneous
  Country: US (occurrence: None)
  Receive Date: 20150929
  Receipt Date: 20150929
  Transmission Date: 20151125
  Serious: Yes (Other)
  Sender: FDA-Public Use
  Company Number: None

PATIENT
  Age: 79 Year
  Sex: Male

DRUGS (1)
  1. PROMACTA [Suspect]
     Active Substance: ELTROMBOPAG OLAMINE
     Indication: IMMUNE THROMBOCYTOPENIC PURPURA
     Dosage: 1 25MG TAB QD PO
     Route: 048
     Dates: start: 20150508, end: 20150928

REACTIONS (3)
  - Muscular weakness [None]
  - Fall [None]
  - Haematoma [None]

NARRATIVE: CASE EVENT DATE: 20150508
